FAERS Safety Report 6613426-2 (Version None)
Quarter: 2010Q1

REPORT INFORMATION
  Report Type: 
  Country: None (occurrence: None)
  Receive Date: 20100225
  Receipt Date: 20100212
  Transmission Date: 20100710
  Serious: Yes (Hospitalization)
  Sender: FDA-Public Use
  Company Number: 007002

PATIENT
  Age: 53 Year
  Sex: Female

DRUGS (4)
  1. PREDNISOLONE [Suspect]
     Indication: RHEUMATOID ARTHRITIS
     Dosage: (ORAL)
     Route: 048
     Dates: start: 20090901, end: 20090901
  2. ERYTHROMYCIN [Suspect]
     Indication: SKIN INFECTION
     Dosage: (ORAL)
     Route: 048
     Dates: start: 20090901, end: 20090901
  3. OLANZAPINE [Concomitant]
  4. PARACETAMOL [Concomitant]

REACTIONS (3)
  - ASTHENIA [None]
  - DRUG INTERACTION [None]
  - MOOD ALTERED [None]
